FAERS Safety Report 4953311-5 (Version None)
Quarter: 2006Q1

REPORT INFORMATION
  Report Type: 
  Country: None (occurrence: None)
  Receive Date: 20060324
  Receipt Date: 20060222
  Transmission Date: 20060701
  Serious: No
  Sender: FDA-Public Use
  Company Number: PHBS2006JP02776

PATIENT
  Age: 65 Year
  Sex: Female

DRUGS (4)
  1. TARIVID OPHTHALMIC [Concomitant]
     Dates: start: 20050704, end: 20050915
  2. GENTALOL [Concomitant]
     Dosage: 8 DRPS/DAY
     Dates: start: 20050727, end: 20050911
  3. RESCULA [Suspect]
     Indication: GLAUCOMA
     Dosage: 4 DRP/DAY
     Dates: start: 20000905, end: 20050910
  4. TARIVID OPHTHALMIC [Concomitant]
     Dosage: 8 DRPS/DAY
     Dates: start: 19961227, end: 20050726

REACTIONS (4)
  - BLEPHAROPLASTY [None]
  - CONJUNCTIVAL EROSION [None]
  - CORNEAL EROSION [None]
  - KERATITIS [None]
